FAERS Safety Report 9366006 (Version 1)
Quarter: 2013Q2

REPORT INFORMATION
  Report Type: Spontaneous
  Country: US (occurrence: US)
  Receive Date: 20130625
  Receipt Date: 20130625
  Transmission Date: 20140414
  Serious: No
  Sender: FDA-Public Use
  Company Number: US-PFIZER INC-2013187652

PATIENT
  Age: 65 Year
  Sex: Female
  Weight: 68.03 kg

DRUGS (6)
  1. CELEBREX [Suspect]
     Indication: MUSCLE SPASMS
     Dosage: UNK
     Dates: start: 20130621
  2. LOVAZA [Suspect]
     Indication: BLOOD TRIGLYCERIDES INCREASED
     Dosage: UNK ( 4 CAPSULES A DAY)
  3. LOVAZA [Suspect]
     Dosage: UNK (2 CAPSULES A DAY)
  4. SIMVASTATIN [Concomitant]
     Indication: BLOOD CHOLESTEROL INCREASED
     Dosage: 20 MG DAILY
  5. ZETIA [Concomitant]
     Indication: BLOOD CHOLESTEROL INCREASED
     Dosage: 10 MG DAILY
  6. XANAX [Concomitant]
     Indication: PANIC ATTACK
     Dosage: UNK

REACTIONS (2)
  - Off label use [Unknown]
  - Dysphagia [Recovering/Resolving]
